FAERS Safety Report 12563024 (Version 1)
Quarter: 2016Q3

REPORT INFORMATION
  Report Type: Spontaneous
  Country: BR (occurrence: BR)
  Receive Date: 20160715
  Receipt Date: 20160715
  Transmission Date: 20161109
  Serious: Yes (Other)
  Sender: FDA-Public Use
  Company Number: BR-ELI_LILLY_AND_COMPANY-BR201607001198

PATIENT
  Sex: Female

DRUGS (6)
  1. LAMITOR [Concomitant]
     Active Substance: LAMOTRIGINE
     Indication: AFFECTIVE DISORDER
     Dosage: UNK, QD
     Route: 065
  2. RIVOTRIL [Concomitant]
     Active Substance: CLONAZEPAM
     Indication: INSOMNIA
     Dosage: 2 MG, EACH EVENING
     Route: 065
  3. CYMBALTA [Suspect]
     Active Substance: DULOXETINE HYDROCHLORIDE
     Indication: DEPRESSION
     Dosage: 30 MG, QD
     Route: 048
     Dates: start: 20160630, end: 20160704
  4. CYMBALTA [Suspect]
     Active Substance: DULOXETINE HYDROCHLORIDE
     Indication: SPINAL PAIN
  5. DORFLEX [Concomitant]
     Active Substance: CAFFEINE\DIPYRONE\ORPHENADRINE
     Dosage: UNK, QD
     Route: 065
  6. CYCLOBENZAPRINE [Concomitant]
     Active Substance: CYCLOBENZAPRINE
     Indication: HEADACHE
     Dosage: 10 MG, QD
     Route: 065

REACTIONS (13)
  - Aphasia [Not Recovered/Not Resolved]
  - Memory impairment [Not Recovered/Not Resolved]
  - Headache [Not Recovered/Not Resolved]
  - Hunger [Not Recovered/Not Resolved]
  - Tachycardia [Not Recovered/Not Resolved]
  - Disturbance in attention [Not Recovered/Not Resolved]
  - Bruxism [Not Recovered/Not Resolved]
  - Weight increased [Not Recovered/Not Resolved]
  - Dysphemia [Not Recovered/Not Resolved]
  - Vision blurred [Not Recovered/Not Resolved]
  - Nightmare [Not Recovered/Not Resolved]
  - Insomnia [Not Recovered/Not Resolved]
  - Emotional disorder [Not Recovered/Not Resolved]

NARRATIVE: CASE EVENT DATE: 20160630
